FAERS Safety Report 9669436 (Version 1)
Quarter: 2013Q4

REPORT INFORMATION
  Report Type: Spontaneous
  Country: US (occurrence: US)
  Receive Date: 20131105
  Receipt Date: 20131105
  Transmission Date: 20140711
  Serious: Yes (Hospitalization)
  Sender: FDA-Public Use
  Company Number: US-DRREDDYS-USA/USA/13/0035373

PATIENT
  Age: 67 Year
  Sex: Male

DRUGS (7)
  1. IBUPROFEN [Suspect]
     Indication: GOUT
     Route: 065
  2. DIGOXIN [Suspect]
     Indication: PRODUCT USED FOR UNKNOWN INDICATION
     Route: 065
  3. ALLOPURINOL [Concomitant]
     Indication: PRODUCT USED FOR UNKNOWN INDICATION
     Route: 065
  4. ATENOLOL [Concomitant]
     Indication: PRODUCT USED FOR UNKNOWN INDICATION
     Route: 065
  5. HYDROXYZINE [Concomitant]
     Indication: PRODUCT USED FOR UNKNOWN INDICATION
     Route: 065
  6. TAMSULOSIN [Concomitant]
     Indication: PRODUCT USED FOR UNKNOWN INDICATION
     Route: 065
  7. ASPIRIN [Concomitant]
     Indication: PRODUCT USED FOR UNKNOWN INDICATION
     Route: 065

REACTIONS (8)
  - Toxicity to various agents [Unknown]
  - Cardioactive drug level increased [Recovering/Resolving]
  - Decreased appetite [Unknown]
  - Nausea [Unknown]
  - Vision blurred [Unknown]
  - Feeling abnormal [Unknown]
  - Renal failure chronic [Unknown]
  - Vomiting [Unknown]
